FAERS Safety Report 5233286-4 (Version None)
Quarter: 2007Q1

REPORT INFORMATION
  Report Type: 
  Country: None (occurrence: None)
  Receive Date: 20070206
  Receipt Date: 20070125
  Transmission Date: 20070707
  Serious: Yes (Hospitalization)
  Sender: FDA-Public Use
  Company Number: 232709

PATIENT
  Age: 47 Year
  Sex: Female
  Weight: 40.8 kg

DRUGS (11)
  1. AVASTIN [Suspect]
     Indication: NON-SMALL CELL LUNG CANCER
     Dosage: 804 MG
     Dates: start: 20060705
  2. ELOXATIN [Suspect]
     Indication: NON-SMALL CELL LUNG CANCER
     Dosage: 746 MG
     Dates: start: 20060705
  3. ALIMTA [Suspect]
     Indication: NON-SMALL CELL LUNG CANCER
     Dosage: 179 MG
     Dates: start: 20060705
  4. AVASTIN [Suspect]
  5. FOLIC ACID [Concomitant]
  6. B12 COMPLEX (XYANOCOBACTAMIN, VITAMIN B COMPLEX) [Concomitant]
  7. ALEVE [Concomitant]
  8. ADVIL [Concomitant]
  9. PRILOSEC [Concomitant]
  10. FENTANYL PATCH (FENTANYL CITRATE) [Concomitant]
  11. DEXAMETHASONE TAB [Concomitant]

REACTIONS (12)
  - BACTERIA URINE IDENTIFIED [None]
  - CONFUSIONAL STATE [None]
  - CULTURE URINE POSITIVE [None]
  - DEHYDRATION [None]
  - DISORIENTATION [None]
  - DRUG TOXICITY [None]
  - ENTEROCOCCAL INFECTION [None]
  - HAEMOGLOBIN DECREASED [None]
  - HEADACHE [None]
  - HYPOKALAEMIA [None]
  - SOMNOLENCE [None]
  - WHITE BLOOD CELLS URINE POSITIVE [None]
